FAERS Safety Report 20024614 (Version 3)
Quarter: 2022Q1

REPORT INFORMATION
  Report Type: Report from Study
  Country: US (occurrence: US)
  Receive Date: 20211102
  Receipt Date: 20220315
  Transmission Date: 20220424
  Serious: Yes (Other)
  Sender: FDA-Public Use
  Company Number: US-NOVARTISPH-NVSC2021US244427

PATIENT
  Age: 79 Year
  Sex: Female

DRUGS (2)
  1. ENTRESTO [Suspect]
     Active Substance: SACUBITRIL\VALSARTAN
     Indication: Cardiac failure
     Dosage: UNK UNK, BID
     Route: 048
     Dates: start: 202008
  2. ENTRESTO [Suspect]
     Active Substance: SACUBITRIL\VALSARTAN
     Dosage: UNK
     Route: 048

REACTIONS (7)
  - Blindness transient [Recovering/Resolving]
  - Ocular vascular disorder [Unknown]
  - Vitreous floaters [Unknown]
  - Cystitis [Unknown]
  - Blood urine present [Unknown]
  - Crystal urine [Not Recovered/Not Resolved]
  - Urine abnormality [Not Recovered/Not Resolved]
